FAERS Safety Report 7327954-8 (Version None)
Quarter: 2011Q1

REPORT INFORMATION
  Report Type: 
  Country: None (occurrence: None)
  Receive Date: 20110217
  Receipt Date: 20110207
  Transmission Date: 20110831
  Serious: Yes (Hospitalization, Disabling)
  Sender: FDA-Public Use
  Company Number: 2010SP020851

PATIENT
  Age: 22 Year
  Sex: Female
  Weight: 99.7913 kg

DRUGS (1)
  1. NUVARING [Suspect]
     Indication: CONTRACEPTION
     Dates: start: 20090629, end: 20100101

REACTIONS (8)
  - WOLFF-PARKINSON-WHITE SYNDROME [None]
  - PLEURAL EFFUSION [None]
  - VENTRICULAR DYSFUNCTION [None]
  - PNEUMONIA [None]
  - HEART RATE IRREGULAR [None]
  - ATELECTASIS [None]
  - PULMONARY EMBOLISM [None]
  - MULTIPLE INJURIES [None]
